FAERS Safety Report 4678999-8 (Version None)
Quarter: 2005Q2

REPORT INFORMATION
  Report Type: 
  Country: None (occurrence: None)
  Receive Date: 20050531
  Receipt Date: 20050415
  Transmission Date: 20051028
  Serious: Yes (Hospitalization)
  Sender: FDA-Public Use
  Company Number: WAES 0505SWE00013

PATIENT
  Age: 56 Year
  Sex: Female

DRUGS (4)
  1. COZAAR [Suspect]
     Dosage: 50 MG/DAILY
     Route: 048
     Dates: start: 20041018
  2. FLUCONAZOLE [Suspect]
     Dosage: 100 MG/DAILY
     Dates: start: 20041006
  3. PREDNISOLONE [Suspect]
     Dosage: 2.5 MG/TID
     Route: 048
     Dates: start: 20041006
  4. CYCLOSPORINE [Concomitant]

REACTIONS (1)
  - HYPOKALAEMIA [None]
